FAERS Safety Report 21380904 (Version 1)
Quarter: 2022Q3

REPORT INFORMATION
  Report Type: Spontaneous
  Country: FR (occurrence: FR)
  Receive Date: 20220927
  Receipt Date: 20220927
  Transmission Date: 20221027
  Serious: Yes (Hospitalization)
  Sender: FDA-Public Use
  Company Number: None

PATIENT
  Age: 72 Year
  Sex: Male
  Weight: 89 kg

DRUGS (6)
  1. EZETIMIBE\SIMVASTATIN [Suspect]
     Active Substance: EZETIMIBE\SIMVASTATIN
     Indication: Dyslipidaemia
     Dosage: 1 DOSAGE FORM QD
     Route: 048
     Dates: start: 20220726
  2. AZATHIOPRINE [Suspect]
     Active Substance: AZATHIOPRINE
     Indication: Eosinophilic granulomatosis with polyangiitis
     Dosage: 100 MG QD
     Route: 048
     Dates: start: 20220630, end: 20220909
  3. PLAVIX [Suspect]
     Active Substance: CLOPIDOGREL BISULFATE
     Indication: Angioplasty
     Dosage: 75 MG QD
     Route: 048
     Dates: start: 20220725, end: 20220906
  4. ELIQUIS [Suspect]
     Active Substance: APIXABAN
     Indication: Atrial fibrillation
     Dosage: 10 MG QD
     Route: 048
     Dates: start: 20220610
  5. PERINDOPRIL [Suspect]
     Active Substance: PERINDOPRIL
     Indication: Angioplasty
     Dosage: 2 MG QD
     Route: 048
     Dates: start: 20220726, end: 20220912
  6. CORDARONE [Suspect]
     Active Substance: AMIODARONE HYDROCHLORIDE
     Indication: Atrial fibrillation
     Dosage: 200 MG QD
     Route: 048
     Dates: start: 20220611, end: 20220912

REACTIONS (1)
  - Mixed liver injury [Not Recovered/Not Resolved]

NARRATIVE: CASE EVENT DATE: 20220902
